FAERS Safety Report 5792508-1 (Version None)
Quarter: 2008Q2

REPORT INFORMATION
  Report Type: 
  Country: None (occurrence: None)
  Receive Date: 20080626
  Receipt Date: 20080616
  Transmission Date: 20081010
  Serious: Yes (Hospitalization)
  Sender: FDA-Public Use
  Company Number: IE-MERCK-0803GBR00052

PATIENT
  Age: 64 Year
  Sex: Female

DRUGS (8)
  1. MODURETIC 5-50 [Suspect]
     Indication: HYPERTENSION
     Route: 048
     Dates: start: 20051115, end: 20070101
  2. MODURETIC 5-50 [Suspect]
     Route: 048
     Dates: start: 20070101, end: 20071210
  3. BISOPROLOL [Concomitant]
     Route: 065
     Dates: start: 20070803
  4. MEBEVERINE HYDROCHLORIDE [Concomitant]
     Route: 065
     Dates: start: 20011002
  5. FLURAZEPAM HYDROCHLORIDE [Concomitant]
     Route: 065
     Dates: start: 20011002
  6. LEVOTHYROXINE SODIUM [Concomitant]
     Route: 065
     Dates: start: 20021105
  7. OMEPRAZOLE [Concomitant]
     Route: 065
     Dates: start: 20070625
  8. ZOLMITRIPTAN [Concomitant]
     Route: 065
     Dates: start: 20030722

REACTIONS (10)
  - ABDOMINAL DISTENSION [None]
  - ASTHENIA [None]
  - BLOOD SODIUM DECREASED [None]
  - CHEST PAIN [None]
  - DEHYDRATION [None]
  - DIZZINESS [None]
  - DYSPNOEA [None]
  - INSOMNIA [None]
  - MUSCLE SPASMS [None]
  - VISION BLURRED [None]
